FAERS Safety Report 4425245-6 (Version None)
Quarter: 2004Q3

REPORT INFORMATION
  Report Type: 
  Country: None (occurrence: None)
  Receive Date: 20040813
  Receipt Date: 20031007
  Transmission Date: 20050211
  Serious: Yes (Death, Hospitalization)
  Sender: FDA-Public Use
  Company Number: DE-BRISTOL-MYERS SQUIBB COMPANY-12403655

PATIENT
  Age: 67 Year
  Sex: Male

DRUGS (2)
  1. CISPLATIN [Suspect]
     Indication: NON-SMALL CELL LUNG CANCER
     Dosage: 1ST CYCLE- 25-JUL-03
     Route: 042
     Dates: start: 20030815, end: 20030815
  2. PACLITAXEL [Suspect]
     Indication: NON-SMALL CELL LUNG CANCER
     Route: 042
     Dates: start: 20030815, end: 20030815

REACTIONS (3)
  - NON-SMALL CELL LUNG CANCER [None]
  - PARAESTHESIA [None]
  - PNEUMONIA [None]
